FAERS Safety Report 11292295 (Version 1)
Quarter: 2015Q3

REPORT INFORMATION
  Report Type: Report from Study
  Country: NL (occurrence: NL)
  Receive Date: 20150722
  Receipt Date: 20150722
  Transmission Date: 20151125
  Serious: Yes (Death, Life-Threatening, Hospitalization)
  Sender: FDA-Public Use
  Company Number: US-ASTRAZENECA-2014SE03521

PATIENT
  Age: 3 Month
  Sex: Male
  Weight: 6.4 kg

DRUGS (4)
  1. SYNAGIS [Suspect]
     Active Substance: PALIVIZUMAB
     Indication: PREMATURE BABY
     Route: 030
  2. SYNAGIS [Suspect]
     Active Substance: PALIVIZUMAB
     Indication: SPINAL MUSCULAR ATROPHY
     Route: 030
     Dates: start: 201311, end: 201312
  3. SYNAGIS [Suspect]
     Active Substance: PALIVIZUMAB
     Indication: PREMATURE BABY
     Route: 030
     Dates: start: 201311, end: 201312
  4. SYNAGIS [Suspect]
     Active Substance: PALIVIZUMAB
     Indication: SPINAL MUSCULAR ATROPHY
     Route: 030

REACTIONS (7)
  - Muscle disorder [Fatal]
  - Respiratory failure [Fatal]
  - Condition aggravated [Unknown]
  - Respiratory disorder [Not Recovered/Not Resolved]
  - Pneumonia aspiration [Fatal]
  - Spinal muscular atrophy [Fatal]
  - Choking [Fatal]

NARRATIVE: CASE EVENT DATE: 20140101
